FAERS Safety Report 6054582-7 (Version None)
Quarter: 2009Q1

REPORT INFORMATION
  Report Type: 
  Country: None (occurrence: None)
  Receive Date: 20090127
  Receipt Date: 20090123
  Transmission Date: 20090719
  Serious: Yes (Death)
  Sender: FDA-Public Use
  Company Number: PHHY2009CA01515

PATIENT
  Sex: Female

DRUGS (8)
  1. CLOZARIL [Suspect]
     Indication: SCHIZOPHRENIA
     Dosage: 350 MG DAILY
     Route: 048
     Dates: start: 20051125, end: 20081222
  2. DEPO-PROVERA [Concomitant]
     Dosage: 150 MG
     Route: 065
  3. EPIVAL [Concomitant]
     Dosage: 500 MG, BID
     Route: 065
  4. FLUANXOL [Concomitant]
     Dosage: 0.5 MG, BID
     Route: 065
  5. MILK OF MAGNESIA [Concomitant]
     Dosage: 3000 QHS
     Route: 065
  6. VENTOLIN [Concomitant]
     Dosage: UNK
     Route: 065
  7. FLOVENT [Concomitant]
     Dosage: 250 MG, BID
  8. SPIRIVA [Concomitant]
     Dosage: T QD
     Route: 065

REACTIONS (3)
  - CARDIAC ARREST [None]
  - CHRONIC OBSTRUCTIVE PULMONARY DISEASE [None]
  - RESPIRATORY FAILURE [None]
